FAERS Safety Report 16057965 (Version 1)
Quarter: 2019Q1

REPORT INFORMATION
  Report Type: Spontaneous
  Country: US (occurrence: US)
  Receive Date: 20190311
  Receipt Date: 20190311
  Transmission Date: 20190418
  Serious: Yes (Other)
  Sender: FDA-Public Use
  Company Number: US-ELI_LILLY_AND_COMPANY-US201903001774

PATIENT
  Age: 64 Year
  Sex: Female
  Weight: 81.63 kg

DRUGS (1)
  1. TALTZ [Suspect]
     Active Substance: IXEKIZUMAB
     Indication: PRODUCT USED FOR UNKNOWN INDICATION
     Dosage: 80 MG, EVERY 4 WEEKS
     Route: 058
     Dates: start: 20180411, end: 20180910

REACTIONS (1)
  - Breast cancer [Unknown]
